FAERS Safety Report 7466209-8 (Version None)
Quarter: 2011Q2

REPORT INFORMATION
  Report Type: 
  Country: None (occurrence: None)
  Receive Date: 20110509
  Receipt Date: 20110504
  Transmission Date: 20111010
  Serious: Yes (Death, Hospitalization)
  Sender: FDA-Public Use
  Company Number: PHHY2011IT37694

PATIENT
  Age: 73 Year
  Sex: Male

DRUGS (8)
  1. LAMIVUDINE [Suspect]
     Indication: THYROID CANCER
     Dosage: UNK UKN, UNK
  2. ADEFOVIR DIPIVOXIL KIT [Suspect]
     Indication: THYROID CANCER
     Dosage: 10 MG, UNK
  3. PREDNISOLONE [Suspect]
     Indication: THYROID CANCER
     Dosage: 50 MG, UNK
  4. MITOXANTRONE [Suspect]
     Indication: THYROID CANCER
     Dosage: UNK UKN, UNK
     Dates: end: 20070301
  5. MESNA [Suspect]
     Indication: THYROID CANCER
     Dosage: UNK UKN, UNK
     Dates: end: 20070301
  6. IFOSFAMIDE [Suspect]
     Indication: THYROID CANCER
     Dosage: UNK UKN, UNK
     Dates: end: 20070301
  7. ETOPOSIDE [Suspect]
     Indication: THYROID CANCER
     Dosage: UNK UKN, UNK
     Dates: end: 20070301
  8. RITUXAN [Suspect]
     Indication: THYROID CANCER
     Dosage: UNK UKN, UNK
     Dates: end: 20070301

REACTIONS (8)
  - HEPATIC FAILURE [None]
  - ASCITES [None]
  - JAUNDICE [None]
  - INTERNATIONAL NORMALISED RATIO INCREASED [None]
  - HEPATIC CIRRHOSIS [None]
  - ENCEPHALOPATHY [None]
  - DRUG RESISTANCE [None]
  - HEPATITIS B [None]
